FAERS Safety Report 4275831-1 (Version None)
Quarter: 2004Q1

REPORT INFORMATION
  Report Type: 
  Country: None (occurrence: None)
  Receive Date: 20040121
  Receipt Date: 20021219
  Transmission Date: 20041129
  Serious: No
  Sender: FDA-Public Use
  Company Number: US-GLAXOSMITHKLINE-A0389808A

PATIENT
  Sex: Female

DRUGS (4)
  1. VALTREX [Suspect]
     Dosage: 1000MG TWICE PER DAY
     Route: 048
     Dates: start: 20021217
  2. CODEINE [Concomitant]
     Indication: PAIN
  3. BENADRYL [Concomitant]
  4. ZYRTEC [Concomitant]

REACTIONS (5)
  - ANAPHYLACTIC REACTION [None]
  - ANGIONEUROTIC OEDEMA [None]
  - RASH [None]
  - SWOLLEN TONGUE [None]
  - URTICARIA [None]
